FAERS Safety Report 16464692 (Version 1)
Quarter: 2019Q2

REPORT INFORMATION
  Report Type: Spontaneous
  Country: US (occurrence: US)
  Receive Date: 20190621
  Receipt Date: 20190621
  Transmission Date: 20190711
  Serious: No
  Sender: FDA-Public Use
  Company Number: US-ACTELION-A-NJ2019-191204

PATIENT
  Age: 66 Year
  Sex: Female

DRUGS (3)
  1. TADALAFIL. [Suspect]
     Active Substance: TADALAFIL
     Indication: PULMONARY ARTERIAL HYPERTENSION
     Dosage: 20 MG
     Route: 065
     Dates: start: 20190506, end: 201905
  2. TADALAFIL. [Suspect]
     Active Substance: TADALAFIL
     Dosage: 10 MG
     Route: 065
     Dates: start: 20190506, end: 201905
  3. OPSUMIT [Suspect]
     Active Substance: MACITENTAN
     Indication: PULMONARY ARTERIAL HYPERTENSION
     Dosage: 10 MG, QD
     Route: 048
     Dates: start: 20190515

REACTIONS (3)
  - Hypotension [Not Recovered/Not Resolved]
  - Headache [Recovered/Resolved]
  - Pollakiuria [Not Recovered/Not Resolved]

NARRATIVE: CASE EVENT DATE: 201905
